FAERS Safety Report 15416311 (Version 3)
Quarter: 2018Q4

REPORT INFORMATION
  Report Type: Spontaneous
  Country: US (occurrence: US)
  Receive Date: 20180924
  Receipt Date: 20181004
  Transmission Date: 20190204
  Serious: Yes (Other)
  Sender: FDA-Public Use
  Company Number: US-BEH-2018094963

PATIENT
  Age: 70 Year
  Sex: Female
  Weight: 68.5 kg

DRUGS (2)
  1. HAEGARDA [Suspect]
     Active Substance: HUMAN C1-ESTERASE INHIBITOR
     Indication: PROPHYLAXIS
  2. HAEGARDA [Suspect]
     Active Substance: HUMAN C1-ESTERASE INHIBITOR
     Indication: ACQUIRED C1 INHIBITOR DEFICIENCY
     Dosage: 4000 IU, TIW
     Route: 058
     Dates: start: 201804, end: 201809

REACTIONS (2)
  - Drug ineffective for unapproved indication [Unknown]
  - Angioedema [Unknown]

NARRATIVE: CASE EVENT DATE: 201808
